FAERS Safety Report 8295802-8 (Version None)
Quarter: 2012Q2

REPORT INFORMATION
  Report Type: 
  Country: None (occurrence: None)
  Receive Date: 20120416
  Receipt Date: 20120405
  Transmission Date: 20120825
  Serious: Yes (Disabling)
  Sender: FDA-Public Use
  Company Number: 2010SP020380

PATIENT
  Age: 55 Year
  Sex: Male
  Weight: 81.6475 kg

DRUGS (3)
  1. CLOTRIMAZOLE AND BETAMETHASONE DIPROPIONATE [Suspect]
     Indication: PRODUCT USED FOR UNKNOWN INDICATION
     Dates: start: 20000101
  2. CLOTRIMAZOLE AND BETAMETHASONE DIPROPIONATE [Suspect]
     Indication: PRODUCT USED FOR UNKNOWN INDICATION
     Dates: start: 20061001, end: 20090408
  3. CLOTRIMAZOLE AND BETAMETHASONE DIPROPIONATE [Suspect]
     Indication: PRODUCT USED FOR UNKNOWN INDICATION
     Dates: start: 20020101

REACTIONS (8)
  - AGGRESSION [None]
  - PERSONALITY CHANGE [None]
  - IMPAIRED WORK ABILITY [None]
  - FRONTOTEMPORAL DEMENTIA [None]
  - JUDGEMENT IMPAIRED [None]
  - COGNITIVE DISORDER [None]
  - ANTISOCIAL BEHAVIOUR [None]
  - ADJUSTMENT DISORDER [None]
